FAERS Safety Report 12414926 (Version 1)
Quarter: 2016Q2

REPORT INFORMATION
  Report Type: Spontaneous
  Country: US (occurrence: US)
  Receive Date: 20160530
  Receipt Date: 20160530
  Transmission Date: 20160815
  Serious: Yes (Other)
  Sender: FDA-Public Use
  Company Number: US-009507513-1605USA012953

PATIENT
  Age: 22 Year
  Sex: Female
  Weight: 44.44 kg

DRUGS (1)
  1. NEXPLANON [Suspect]
     Active Substance: ETONOGESTREL
     Indication: CONTRACEPTION
     Dosage: EVERY 3 YEARS, LEFT ARM IMPLANT
     Route: 059
     Dates: start: 20150102

REACTIONS (7)
  - Weight decreased [Unknown]
  - Self injurious behaviour [Unknown]
  - Depression [Unknown]
  - Anxiety [Unknown]
  - Loss of libido [Unknown]
  - Menorrhagia [Unknown]
  - Blindness unilateral [Unknown]
